FAERS Safety Report 7312895-2 (Version None)
Quarter: 2011Q1

REPORT INFORMATION
  Report Type: 
  Country: None (occurrence: None)
  Receive Date: 20110224
  Receipt Date: 20110211
  Transmission Date: 20110831
  Serious: Yes (Hospitalization, Other)
  Sender: FDA-Public Use
  Company Number: CA-ROCHE-748553

PATIENT
  Sex: Male

DRUGS (8)
  1. DILANTIN [Suspect]
     Route: 065
  2. DECADRON [Concomitant]
  3. INSULIN [Concomitant]
     Indication: STEROID THERAPY
  4. EPIVAL [Suspect]
     Route: 065
  5. ZYTRAM [Concomitant]
  6. BEVACIZUMAB [Suspect]
     Indication: GLIOBLASTOMA
     Dosage: THERAPY CURRENTLY ON HOLD
     Route: 042
     Dates: start: 20101103, end: 20110207
  7. KEPPRA [Concomitant]
  8. PREVACID [Concomitant]

REACTIONS (14)
  - LETHARGY [None]
  - FATIGUE [None]
  - CONVULSION [None]
  - ABASIA [None]
  - ACTIVITIES OF DAILY LIVING IMPAIRED [None]
  - NASOPHARYNGITIS [None]
  - SOMNOLENCE [None]
  - CONFUSIONAL STATE [None]
  - DYSARTHRIA [None]
  - APHASIA [None]
  - ANTICONVULSANT DRUG LEVEL INCREASED [None]
  - MOBILITY DECREASED [None]
  - MOOD SWINGS [None]
  - TOXICITY TO VARIOUS AGENTS [None]
